FAERS Safety Report 8236912-0 (Version None)
Quarter: 2012Q1

REPORT INFORMATION
  Report Type: 
  Country: None (occurrence: None)
  Receive Date: 20120327
  Receipt Date: 20120313
  Transmission Date: 20120608
  Serious: Yes (Hospitalization)
  Sender: FDA-Public Use
  Company Number: US-VERTEX PHARMACEUTICALS INC.-AE-2012-003602

PATIENT
  Sex: Female
  Weight: 87.168 kg

DRUGS (7)
  1. INCIVEK [Suspect]
     Indication: HEPATITIS C
     Route: 048
     Dates: start: 20120228, end: 20120301
  2. NEXIUM [Concomitant]
  3. CALCIUM CARBONATE [Concomitant]
  4. PEGASYS [Concomitant]
     Indication: HEPATITIS C
     Route: 058
     Dates: start: 20120228, end: 20120301
  5. ALDACTONE [Concomitant]
  6. RIBASPHERE [Concomitant]
     Indication: HEPATITIS C
     Route: 048
     Dates: start: 20120228, end: 20120301
  7. LASIX [Concomitant]

REACTIONS (4)
  - PLATELET COUNT DECREASED [None]
  - HEADACHE [None]
  - WHITE BLOOD CELL COUNT DECREASED [None]
  - ASTHENIA [None]
